FAERS Safety Report 5165391-5 (Version None)
Quarter: 2006Q4

REPORT INFORMATION
  Report Type: 
  Country: None (occurrence: None)
  Receive Date: 20061206
  Receipt Date: 20061113
  Transmission Date: 20070319
  Serious: Yes (Other)
  Sender: FDA-Public Use
  Company Number: US-AMGEN-US200301

PATIENT
  Sex: Male

DRUGS (18)
  1. ENBREL [Suspect]
     Indication: SPONDYLOARTHROPATHY
     Route: 058
     Dates: start: 20031001
  2. ACTONEL [Concomitant]
     Route: 048
     Dates: start: 20050501
  3. ALBUTEROL [Concomitant]
  4. AZMACORT [Concomitant]
  5. CYMBALTA [Concomitant]
     Dates: start: 20050401
  6. FLUCONAZOLE [Concomitant]
     Dates: start: 20051001
  7. FOLIC ACID [Concomitant]
     Dates: start: 20031201
  8. PLAQUENIL [Concomitant]
     Dates: start: 20060301
  9. LUNESTA [Concomitant]
     Dates: start: 20060601
  10. METHOTREXATE [Concomitant]
     Route: 058
     Dates: start: 20031201
  11. NASACORT [Concomitant]
  12. PROTONIX [Concomitant]
     Dates: start: 20020801
  13. TRIAMTERENE [Concomitant]
     Dates: start: 20050401
  14. REQUIP [Concomitant]
     Dates: start: 20060201
  15. ETODOLAC [Concomitant]
  16. GABAPENTIN [Concomitant]
     Dates: start: 19970101
  17. LEFLUNOMIDE [Concomitant]
     Dates: start: 20050501, end: 20050901
  18. HUMIRA [Concomitant]
     Dates: start: 20040630, end: 20061005

REACTIONS (1)
  - PROSTATE CANCER [None]
